FAERS Safety Report 5059890-4 (Version None)
Quarter: 2006Q3

REPORT INFORMATION
  Report Type: 
  Country: None (occurrence: None)
  Receive Date: 20060718
  Receipt Date: 20060706
  Transmission Date: 20061208
  Serious: Yes (Death, Other)
  Sender: FDA-Public Use
  Company Number: 2005107341

PATIENT
  Age: 29 Year
  Sex: Male
  Weight: 105.6881 kg

DRUGS (10)
  1. NEURONTIN [Suspect]
     Indication: BIPOLAR DISORDER
     Dosage: 1200 MG (400 MG, 3 IN 1 D), ORAL
     Route: 048
     Dates: start: 20030514
  2. SEROQUEL [Suspect]
     Indication: ILL-DEFINED DISORDER
     Dosage: 500 MG (1 D), ORAL
     Route: 048
  3. XANAX [Concomitant]
  4. KLONOPIN [Concomitant]
  5. PAMELOR [Concomitant]
  6. ZOLOFT [Concomitant]
  7. LITHOBID [Concomitant]
  8. NAVANE [Concomitant]
  9. COGENTIN [Concomitant]
  10. HALDOL [Concomitant]

REACTIONS (3)
  - COMPLETED SUICIDE [None]
  - DRUG INEFFECTIVE [None]
  - INTENTIONAL OVERDOSE [None]
